FAERS Safety Report 17763003 (Version 2)
Quarter: 2020Q2

REPORT INFORMATION
  Report Type: Report from Study
  Country: BR (occurrence: BR)
  Receive Date: 20200508
  Receipt Date: 20200519
  Transmission Date: 20200714
  Serious: Yes (Life-Threatening, Hospitalization, Other)
  Sender: FDA-Public Use
  Company Number: BR-BRISTOL-MYERS SQUIBB COMPANY-BMS-2020-036482

PATIENT
  Age: 64 Year
  Sex: Male
  Weight: 80 kg

DRUGS (11)
  1. NIVOLUMAB [Suspect]
     Active Substance: NIVOLUMAB
     Indication: BLADDER CANCER
     Dosage: 360 MILLIGRAM
     Route: 042
     Dates: start: 20191213
  2. GEMCITABINE. [Suspect]
     Active Substance: GEMCITABINE
     Indication: BLADDER CANCER
     Dosage: 1960 MILLIGRAM
     Route: 065
     Dates: start: 20191213
  3. ATORVASTATINA [ATORVASTATIN] [Concomitant]
     Active Substance: ATORVASTATIN
     Indication: PRODUCT USED FOR UNKNOWN INDICATION
     Route: 048
     Dates: start: 20140101
  4. PLACEBO [Suspect]
     Active Substance: UNSPECIFIED INGREDIENT
     Indication: BLADDER CANCER
     Dosage: 1 DOSAGE FORM
     Route: 065
     Dates: start: 20191211
  5. AAS [Concomitant]
     Active Substance: ASPIRIN
     Indication: PRODUCT USED FOR UNKNOWN INDICATION
     Route: 048
     Dates: start: 20140101
  6. NAPRIX [Concomitant]
     Active Substance: RAMIPRIL
     Indication: PRODUCT USED FOR UNKNOWN INDICATION
     Route: 048
     Dates: start: 20140101
  7. CISPLATIN. [Suspect]
     Active Substance: CISPLATIN
     Indication: BLADDER CANCER
     Dosage: 138 MILLIGRAM
     Route: 065
     Dates: start: 20191213
  8. ALPRAZOLAM. [Concomitant]
     Active Substance: ALPRAZOLAM
     Indication: PRODUCT USED FOR UNKNOWN INDICATION
     Route: 048
     Dates: start: 20191112
  9. SELOZOK [Concomitant]
     Active Substance: METOPROLOL SUCCINATE
     Indication: PRODUCT USED FOR UNKNOWN INDICATION
     Route: 048
     Dates: start: 20140101
  10. PLASIL [METOCLOPRAMIDE HYDROCHLORIDE] [Concomitant]
     Active Substance: METOCLOPRAMIDE HYDROCHLORIDE
     Indication: PRODUCT USED FOR UNKNOWN INDICATION
     Route: 048
     Dates: start: 20191112
  11. OMEPRAZOLE. [Concomitant]
     Active Substance: OMEPRAZOLE
     Indication: PRODUCT USED FOR UNKNOWN INDICATION
     Route: 048
     Dates: start: 20010101

REACTIONS (1)
  - Post procedural complication [Recovered/Resolved]

NARRATIVE: CASE EVENT DATE: 20200413
